FAERS Safety Report 10946528 (Version 1)
Quarter: 2015Q1

REPORT INFORMATION
  Report Type: Spontaneous
  Country: US (occurrence: US)
  Receive Date: 20150323
  Receipt Date: 20150323
  Transmission Date: 20150721
  Serious: Yes (Other)
  Sender: FDA-Public Use
  Company Number: US-SA-2015SA034384

PATIENT
  Age: 30 Year
  Sex: Female

DRUGS (1)
  1. NASACORT ALLERGY 24HR [Suspect]
     Active Substance: TRIAMCINOLONE ACETONIDE
     Indication: HYPERSENSITIVITY
     Dosage: START DATE 1 WEEK AGO
     Route: 065

REACTIONS (6)
  - Rhinorrhoea [Unknown]
  - Tremor [Unknown]
  - Malaise [Unknown]
  - Coeliac disease [Unknown]
  - Nausea [Unknown]
  - Vomiting [Unknown]
